APPROVED DRUG PRODUCT: TETRABENAZINE
Active Ingredient: TETRABENAZINE
Strength: 12.5MG
Dosage Form/Route: TABLET;ORAL
Application: A209739 | Product #001
Applicant: HIKMA PHARMACEUTICALS USA INC
Approved: Apr 8, 2019 | RLD: No | RS: No | Type: DISCN